FAERS Safety Report 4462185-0 (Version None)
Quarter: 2004Q3

REPORT INFORMATION
  Report Type: 
  Country: None (occurrence: None)
  Receive Date: 20040924
  Receipt Date: 20040707
  Transmission Date: 20050211
  Serious: Yes (Hospitalization)
  Sender: FDA-Public Use
  Company Number: 2004UW13995

PATIENT
  Age: 21 Year
  Sex: Male

DRUGS (2)
  1. IRESSA [Suspect]
     Indication: NEOPLASM
     Dates: start: 20040605
  2. IRINOTECAN [Suspect]
     Indication: NEOPLASM
     Dates: start: 20040605

REACTIONS (4)
  - BLOOD CREATININE INCREASED [None]
  - DEHYDRATION [None]
  - DIARRHOEA [None]
  - PROTEINURIA [None]
